FAERS Safety Report 13957295 (Version 1)
Quarter: 2017Q3

REPORT INFORMATION
  Report Type: Spontaneous
  Country: US (occurrence: US)
  Receive Date: 20170911
  Receipt Date: 20170911
  Transmission Date: 20171128
  Serious: Yes (Hospitalization)
  Sender: FDA-Public Use
  Company Number: US-009507513-1709USA003436

PATIENT
  Age: 23 Year
  Sex: Female
  Weight: 59 kg

DRUGS (2)
  1. NEXPLANON [Suspect]
     Active Substance: ETONOGESTREL
     Indication: CONTRACEPTION
     Dosage: 1 ROD, UNK
     Route: 059
     Dates: start: 2016
  2. IMPLANON [Suspect]
     Active Substance: ETONOGESTREL
     Indication: CONTRACEPTION
     Dosage: 1 ROD, UNK
     Route: 059
     Dates: start: 20121019

REACTIONS (3)
  - Incorrect drug administration duration [Unknown]
  - Overdose [Unknown]
  - Menorrhagia [Unknown]

NARRATIVE: CASE EVENT DATE: 20151020
